FAERS Safety Report 6245349-5 (Version None)
Quarter: 2009Q2

REPORT INFORMATION
  Report Type: 
  Country: None (occurrence: None)
  Receive Date: 20090625
  Receipt Date: 20090617
  Transmission Date: 20091009
  Serious: Yes (Other)
  Sender: FDA-Public Use
  Company Number: US-PFIZER INC-2009228995

PATIENT
  Sex: Female

DRUGS (1)
  1. LIPITOR [Suspect]
     Indication: BLOOD CHOLESTEROL INCREASED
     Dates: start: 20010101, end: 20080101

REACTIONS (4)
  - CONVULSION [None]
  - DEMENTIA ALZHEIMER'S TYPE [None]
  - DIABETES MELLITUS [None]
  - DYSPHAGIA [None]
